FAERS Safety Report 20998759 (Version 5)
Quarter: 2022Q3

REPORT INFORMATION
  Report Type: Report from Study
  Country: US (occurrence: US)
  Receive Date: 20220623
  Receipt Date: 20220826
  Transmission Date: 20221027
  Serious: No
  Sender: FDA-Public Use
  Company Number: US-NOVARTISTESTPH-NVSC2022US142960

PATIENT
  Sex: Male
  Weight: 74.84 kg

DRUGS (2)
  1. ENTRESTO [Suspect]
     Active Substance: SACUBITRIL\VALSARTAN
     Indication: Cardiac failure chronic
     Dosage: 1 DOSAGE FORM, BID (49/51 MG)
     Route: 048
     Dates: start: 20220617
  2. ENTRESTO [Suspect]
     Active Substance: SACUBITRIL\VALSARTAN
     Dosage: 1 DOSAGE FORM (97/103 MG)
     Route: 048

REACTIONS (10)
  - Gait disturbance [Unknown]
  - Lethargy [Unknown]
  - Malaise [Recovering/Resolving]
  - Fluid retention [Recovering/Resolving]
  - Weight increased [Unknown]
  - Fatigue [Recovering/Resolving]
  - Hypotension [Unknown]
  - Dysphonia [Not Recovered/Not Resolved]
  - Throat clearing [Not Recovered/Not Resolved]
  - Hypersensitivity [Not Recovered/Not Resolved]
